FAERS Safety Report 15720451 (Version 1)
Quarter: 2018Q4

REPORT INFORMATION
  Report Type: Report from Study
  Country: JP (occurrence: JP)
  Receive Date: 20181213
  Receipt Date: 20181213
  Transmission Date: 20190205
  Serious: Yes (Other)
  Sender: FDA-Public Use
  Company Number: PHJP2018JP015767

PATIENT
  Age: 13 Year
  Sex: Female
  Weight: 37.7 kg

DRUGS (21)
  1. ILARIS [Suspect]
     Active Substance: CANAKINUMAB
     Dosage: 300 MG, UNK
     Route: 058
     Dates: start: 20180809
  2. ILARIS [Suspect]
     Active Substance: CANAKINUMAB
     Dosage: 150 MG, UNK
     Route: 058
     Dates: start: 20180906
  3. COLCHICINE. [Concomitant]
     Active Substance: COLCHICINE
     Indication: FAMILIAL MEDITERRANEAN FEVER
     Dosage: 0.5 MG, UNK
     Route: 048
     Dates: start: 20170302, end: 20170405
  4. COLCHICINE. [Concomitant]
     Active Substance: COLCHICINE
     Dosage: 1 MG, UNK
     Route: 048
     Dates: start: 20170406, end: 20170622
  5. COLCHICINE. [Concomitant]
     Active Substance: COLCHICINE
     Dosage: 1.0 MG, UNK
     Route: 048
     Dates: start: 20170713, end: 20171019
  6. COLCHICINE. [Concomitant]
     Active Substance: COLCHICINE
     Dosage: 1.5 MG, UNK
     Route: 048
     Dates: start: 20180906
  7. ILARIS [Suspect]
     Active Substance: CANAKINUMAB
     Dosage: 150 MG, UNK
     Route: 058
     Dates: start: 20180510
  8. ILARIS [Suspect]
     Active Substance: CANAKINUMAB
     Dosage: 150 MG, UNK
     Route: 058
     Dates: start: 20180208
  9. ILARIS [Suspect]
     Active Substance: CANAKINUMAB
     Dosage: 150 MG, UNK
     Route: 058
     Dates: start: 20180308
  10. ILARIS [Suspect]
     Active Substance: CANAKINUMAB
     Dosage: 150 MG, UNK
     Route: 058
     Dates: start: 20180405
  11. ILARIS [Suspect]
     Active Substance: CANAKINUMAB
     Dosage: 150 MG, UNK
     Route: 058
     Dates: start: 20180712
  12. COLCHICINE. [Concomitant]
     Active Substance: COLCHICINE
     Dosage: 1.0 MG, UNK
     Route: 048
     Dates: start: 20180510, end: 20180809
  13. ILARIS [Suspect]
     Active Substance: CANAKINUMAB
     Dosage: 150 MG, UNK
     Route: 058
     Dates: start: 20180118
  14. ILARIS [Suspect]
     Active Substance: CANAKINUMAB
     Dosage: 150 MG, UNK
     Route: 058
     Dates: start: 20181004
  15. ILARIS [Suspect]
     Active Substance: CANAKINUMAB
     Dosage: 150 MG, UNK
     Route: 058
     Dates: start: 20181101
  16. COLCHICINE. [Concomitant]
     Active Substance: COLCHICINE
     Dosage: 1.5 MG, UNK
     Route: 048
     Dates: start: 20170623, end: 20170629
  17. ILARIS [Suspect]
     Active Substance: CANAKINUMAB
     Dosage: 150 MG, UNK
     Route: 058
     Dates: start: 20180614
  18. ILARIS [Suspect]
     Active Substance: CANAKINUMAB
     Dosage: 150 MG, UNK
     Route: 058
     Dates: start: 20181129
  19. COLCHICINE. [Concomitant]
     Active Substance: COLCHICINE
     Dosage: 1.5 MG, UNK
     Route: 048
     Dates: start: 20171020, end: 20180509
  20. ILARIS [Suspect]
     Active Substance: CANAKINUMAB
     Indication: FAMILIAL MEDITERRANEAN FEVER
     Dosage: 150 MG, UNK
     Route: 058
     Dates: start: 20171221
  21. IBUPROFEN. [Concomitant]
     Active Substance: IBUPROFEN
     Indication: FAMILIAL MEDITERRANEAN FEVER
     Dosage: UNK
     Route: 065

REACTIONS (7)
  - Abdominal pain [Recovered/Resolved]
  - Lymphocyte count decreased [Unknown]
  - Abdominal pain [Recovered/Resolved]
  - Pica [Not Recovered/Not Resolved]
  - Upper respiratory tract infection [Unknown]
  - Abdominal pain [Recovered/Resolved]
  - Rhinitis [Recovered/Resolved]

NARRATIVE: CASE EVENT DATE: 201805
